FAERS Safety Report 4943022-4 (Version None)
Quarter: 2006Q1

REPORT INFORMATION
  Report Type: 
  Country: None (occurrence: None)
  Receive Date: 20060314
  Receipt Date: 20040423
  Transmission Date: 20060701
  Serious: Yes (Hospitalization)
  Sender: FDA-Public Use
  Company Number: IT-SANOFI-SYNTHELABO-D01200401

PATIENT
  Age: 63 Year
  Sex: Female
  Weight: 70 kg

DRUGS (7)
  1. FONDAPARINUX [Suspect]
     Indication: ACUTE CORONARY SYNDROME
     Dosage: 2.5MG PER DAY
     Route: 058
     Dates: start: 20040413
  2. ASPIRIN [Concomitant]
     Route: 065
  3. ATENOLOL [Concomitant]
     Route: 048
  4. CLOPIDOGREL [Concomitant]
     Route: 065
  5. NITRATES [Concomitant]
     Route: 065
  6. OMEPRAZOLE [Concomitant]
  7. RAMIPRIL [Concomitant]
     Dosage: 2.5MG PER DAY
     Route: 065

REACTIONS (1)
  - CORONARY ARTERY THROMBOSIS [None]
